FAERS Safety Report 8454586-0 (Version None)
Quarter: 2012Q2

REPORT INFORMATION
  Report Type: 
  Country: None (occurrence: None)
  Receive Date: 20120621
  Receipt Date: 20120610
  Transmission Date: 20120825
  Serious: No
  Sender: FDA-Public Use
  Company Number: US-BIOGENIDEC-2012BI020577

PATIENT
  Age: 29 Year
  Sex: Male

DRUGS (1)
  1. AVONEX [Suspect]
     Indication: MULTIPLE SCLEROSIS
     Route: 030
     Dates: start: 20120516, end: 20120531

REACTIONS (3)
  - FATIGUE [None]
  - VISUAL ACUITY REDUCED [None]
  - DIZZINESS [None]
